FAERS Safety Report 14536263 (Version 4)
Quarter: 2018Q3

REPORT INFORMATION
  Report Type: Spontaneous
  Country: JP (occurrence: JP)
  Receive Date: 20180215
  Receipt Date: 20180731
  Transmission Date: 20181010
  Serious: Yes (Death, Life-Threatening, Hospitalization, Other)
  Sender: FDA-Public Use
  Company Number: JP-BAYER-2018-015403

PATIENT
  Age: 60 Year
  Sex: Female
  Weight: 55 kg

DRUGS (8)
  1. STIVARGA [Suspect]
     Active Substance: REGORAFENIB
     Indication: HEPATIC CANCER METASTATIC
  2. TAZOBAC [PIPERACILLIN SODIUM,TAZOBACTAM SODIUM] [Concomitant]
     Active Substance: PIPERACILLIN SODIUM\TAZOBACTAM SODIUM
     Indication: INFECTION PROPHYLAXIS
     Dosage: UNK
  3. TAZOBAC [PIPERACILLIN SODIUM,TAZOBACTAM SODIUM] [Concomitant]
     Active Substance: PIPERACILLIN SODIUM\TAZOBACTAM SODIUM
     Indication: ACUTE HEPATIC FAILURE
  4. PLATELETS [Concomitant]
     Active Substance: HUMAN PLATELET, ALLOGENIC
     Dosage: UNK
     Dates: start: 20180120
  5. STIVARGA [Suspect]
     Active Substance: REGORAFENIB
     Indication: LUNG CANCER METASTATIC
  6. PIPERACILLIN SODIUM [Concomitant]
     Active Substance: PIPERACILLIN SODIUM
     Dosage: UNK
     Dates: start: 20180116
  7. HUMAN RED BLOOD CELLS [Concomitant]
     Active Substance: HUMAN RED BLOOD CELL
     Dosage: UNK
     Dates: start: 20180120
  8. STIVARGA [Suspect]
     Active Substance: REGORAFENIB
     Indication: COLORECTAL CANCER RECURRENT
     Dosage: 80 MG, BID
     Route: 048
     Dates: start: 20180104, end: 20180118

REACTIONS (23)
  - Coagulopathy [None]
  - Malaise [Recovering/Resolving]
  - Acute hepatic failure [Fatal]
  - Depressed level of consciousness [Not Recovered/Not Resolved]
  - Jaundice [Fatal]
  - Acute kidney injury [Not Recovered/Not Resolved]
  - Urinary tract infection [Recovering/Resolving]
  - Acidosis [None]
  - Decreased appetite [Fatal]
  - Hepatic function abnormal [Fatal]
  - Infection [None]
  - Hypoglycaemia [None]
  - Alanine aminotransferase increased [Fatal]
  - Blood lactic acid increased [None]
  - Pyrexia [Recovering/Resolving]
  - Malaise [Fatal]
  - Disseminated intravascular coagulation [None]
  - Aspartate aminotransferase increased [Fatal]
  - Lethargy [Fatal]
  - Hyperkalaemia [Not Recovered/Not Resolved]
  - Hepatic encephalopathy [Fatal]
  - Anuria [Not Recovered/Not Resolved]
  - Pyrexia [Fatal]

NARRATIVE: CASE EVENT DATE: 20180107
